FAERS Safety Report 7469721-0 (Version None)
Quarter: 2011Q2

REPORT INFORMATION
  Report Type: 
  Country: None (occurrence: None)
  Receive Date: 20110510
  Receipt Date: 20110421
  Transmission Date: 20111010
  Serious: No
  Sender: FDA-Public Use
  Company Number: US-B.I. PHARMACEUTICALS,INC./RIDGEFIELD-2011-BP-06478BP

PATIENT
  Age: 84 Year
  Sex: Female
  Weight: 81.65 kg

DRUGS (10)
  1. AMLODIPINE BESYLATE [Concomitant]
     Dosage: 5 MG
     Dates: start: 20100923
  2. TEKTURNA [Concomitant]
     Dosage: 300 MG
     Route: 048
     Dates: start: 20080320
  3. HYDRALAZINE HCL [Concomitant]
     Dosage: 75 MG
     Route: 048
     Dates: start: 20080321
  4. AMARYL [Concomitant]
     Dosage: 2 MG
     Dates: start: 20100318
  5. TOPROL-XL [Concomitant]
     Dosage: 100 MG
     Route: 048
     Dates: start: 20000331
  6. CLONIDINE [Concomitant]
     Dosage: 0.4 MG
     Dates: start: 20100118
  7. PRADAXA [Suspect]
     Indication: ATRIAL FIBRILLATION
     Dosage: 150 MG
     Route: 048
     Dates: start: 20110210
  8. NIASPAN [Concomitant]
     Dosage: 500 MG
     Route: 048
     Dates: start: 20100318
  9. NORPACE [Concomitant]
     Dosage: 300 MG
     Route: 048
     Dates: start: 20071206
  10. LOVASTATIN [Concomitant]
     Dosage: 20 MG
     Route: 048
     Dates: start: 20100318

REACTIONS (1)
  - COAGULOPATHY [None]
